FAERS Safety Report 4992939-3 (Version None)
Quarter: 2006Q2

REPORT INFORMATION
  Report Type: 
  Country: None (occurrence: None)
  Receive Date: 20060504
  Receipt Date: 20060425
  Transmission Date: 20061013
  Serious: Yes (Hospitalization, Disabling)
  Sender: FDA-Public Use
  Company Number: US-MERCK-0604USA03718

PATIENT
  Age: 41 Year
  Sex: Female

DRUGS (1)
  1. VIOXX [Suspect]
     Indication: POSTOPERATIVE ANALGESIA
     Route: 048
     Dates: start: 20020701

REACTIONS (3)
  - ADVERSE EVENT [None]
  - CARDIAC DISORDER [None]
  - CEREBROVASCULAR ACCIDENT [None]
